FAERS Safety Report 21878094 (Version 1)
Quarter: 2023Q1

REPORT INFORMATION
  Report Type: Spontaneous
  Country: US (occurrence: US)
  Receive Date: 20230118
  Receipt Date: 20230118
  Transmission Date: 20230418
  Serious: Yes (Life-Threatening, Hospitalization, Other)
  Sender: FDA-Public Use
  Company Number: US-PFIZER INC-PV202300009337

PATIENT
  Age: 9 Year
  Sex: Male

DRUGS (3)
  1. TOBRAMYCIN [Suspect]
     Active Substance: TOBRAMYCIN
     Indication: Scoliosis surgery
     Dosage: UNK
  2. CEFAZOLIN [Suspect]
     Active Substance: CEFAZOLIN
     Indication: Scoliosis surgery
     Dosage: UNK
  3. THROMBIN [Suspect]
     Active Substance: THROMBIN
     Indication: Scoliosis surgery
     Dosage: UNK

REACTIONS (3)
  - Respiratory disorder [Recovering/Resolving]
  - Hypotension [Recovering/Resolving]
  - Off label use [Unknown]
